FAERS Safety Report 16388187 (Version 1)
Quarter: 2019Q2

REPORT INFORMATION
  Report Type: Report from Study
  Country: IN (occurrence: IN)
  Receive Date: 20190604
  Receipt Date: 20190604
  Transmission Date: 20190711
  Serious: Yes (Hospitalization)
  Sender: FDA-Public Use
  Company Number: PHHY2019IN126128

PATIENT
  Age: 61 Year
  Sex: Female

DRUGS (2)
  1. TAURITMO (MIDOSTAURIN) [Suspect]
     Active Substance: MIDOSTAURIN
     Indication: ACUTE MYELOID LEUKAEMIA
     Dosage: 50 MG, BID
     Route: 048
     Dates: start: 20190519, end: 20190519
  2. TAURITMO (MIDOSTAURIN) [Suspect]
     Active Substance: MIDOSTAURIN
     Dosage: 50 MG, BID
     Route: 048
     Dates: start: 20190522, end: 20190523

REACTIONS (4)
  - White blood cell count decreased [Unknown]
  - Ear swelling [Unknown]
  - Chest pain [Unknown]
  - Rash [Unknown]

NARRATIVE: CASE EVENT DATE: 20190519
